FAERS Safety Report 16741737 (Version 1)
Quarter: 2019Q3

REPORT INFORMATION
  Report Type: Spontaneous
  Country: US (occurrence: US)
  Receive Date: 20190826
  Receipt Date: 20190826
  Transmission Date: 20191005
  Serious: Yes (Hospitalization)
  Sender: FDA-Public Use
  Company Number: US-SAMSUNG BIOEPIS-SB-2019-24899

PATIENT
  Age: 21 Year
  Sex: Male

DRUGS (1)
  1. INFLIXIMAB [Suspect]
     Active Substance: INFLIXIMAB
     Indication: HIDRADENITIS
     Dosage: UNKNOWN
     Route: 065

REACTIONS (3)
  - Pyrexia [Recovered/Resolved]
  - Off label use [Unknown]
  - Leukocytosis [Unknown]
